FAERS Safety Report 4869279-6 (Version None)
Quarter: 2005Q4

REPORT INFORMATION
  Report Type: 
  Country: None (occurrence: None)
  Receive Date: 20051230
  Receipt Date: 20040412
  Transmission Date: 20060501
  Serious: Yes (Death, Other)
  Sender: FDA-Public Use
  Company Number: PHBS2004CA04974

PATIENT
  Sex: Male

DRUGS (11)
  1. PREDNISOLONE [Concomitant]
     Route: 065
  2. MELPHALAN [Concomitant]
     Route: 065
  3. PBST [Concomitant]
     Route: 065
     Dates: start: 20010727
  4. PREDNISONE TAB [Concomitant]
     Dosage: 40 MG EVERY THIRD DAY
     Route: 065
  5. RITALIN [Concomitant]
     Route: 065
  6. EFFEXOR [Concomitant]
     Route: 065
  7. DILANTIN [Concomitant]
     Route: 065
  8. CYCLOPHOSPHAMIDE [Concomitant]
     Route: 065
  9. THALIDOMIDE [Concomitant]
     Route: 065
  10. VINCRISTINE + ADRIAMYCIN + DEXAMETHASONE [Concomitant]
     Dosage: 4 CYCLES
     Dates: start: 20010201, end: 20010501
  11. PAMIDRONATE DISODIUM [Suspect]
     Indication: MULTIPLE MYELOMA
     Dosage: 90 MG, QMO
     Route: 065

REACTIONS (9)
  - BLOOD LACTATE DEHYDROGENASE INCREASED [None]
  - BONE DEBRIDEMENT [None]
  - DEATH [None]
  - GINGIVAL ULCERATION [None]
  - LUDWIG ANGINA [None]
  - OSTEONECROSIS [None]
  - PAIN IN JAW [None]
  - SURGERY [None]
  - TOOTH EXTRACTION [None]
